FAERS Safety Report 19721854 (Version 1)
Quarter: 2021Q3

REPORT INFORMATION
  Report Type: Spontaneous
  Country: CN (occurrence: CN)
  Receive Date: 20210819
  Receipt Date: 20210819
  Transmission Date: 20211014
  Serious: Yes (Other)
  Sender: FDA-Public Use
  Company Number: CN-ASTRAZENECA-2021A687403

PATIENT
  Age: 18992 Day
  Sex: Male
  Weight: 80 kg

DRUGS (1)
  1. BRILINTA [Suspect]
     Active Substance: TICAGRELOR
     Indication: ANTIPLATELET THERAPY
     Route: 048
     Dates: start: 20210624, end: 20210625

REACTIONS (1)
  - Asphyxia [Recovering/Resolving]

NARRATIVE: CASE EVENT DATE: 20210625
